FAERS Safety Report 14538003 (Version 4)
Quarter: 2018Q2

REPORT INFORMATION
  Report Type: Spontaneous
  Country: JP (occurrence: JP)
  Receive Date: 20180216
  Receipt Date: 20180402
  Transmission Date: 20180711
  Serious: Yes (Hospitalization)
  Sender: FDA-Public Use
  Company Number: JP-ABBVIE-18K-087-2249630-00

PATIENT
  Age: 68 Year
  Sex: Female

DRUGS (3)
  1. DUODOPA [Suspect]
     Active Substance: CARBIDOPA\LEVODOPA
     Dosage: MD: 8 ML, CD: 3 ML/HR X 15 HR
     Route: 050
     Dates: start: 20170606, end: 20180124
  2. LEVODOPA + CARBIDOPA + ENTACAPONA STADA [Concomitant]
     Indication: PRODUCT USED FOR UNKNOWN INDICATION
     Route: 048
     Dates: start: 20170605, end: 20170608
  3. DUODOPA [Suspect]
     Active Substance: CARBIDOPA\LEVODOPA
     Indication: PRODUCT USED FOR UNKNOWN INDICATION
     Dosage: MD: 8 ML, CD: 3 ML/HR X 15 HR
     Route: 050
     Dates: start: 20170328, end: 20170605

REACTIONS (4)
  - Device occlusion [Recovered/Resolved]
  - Device issue [Recovered/Resolved]
  - Gastric ulcer [Recovering/Resolving]
  - Gastrointestinal haemorrhage [Recovered/Resolved]

NARRATIVE: CASE EVENT DATE: 20170605
